FAERS Safety Report 12622015 (Version 1)
Quarter: 2016Q3

REPORT INFORMATION
  Report Type: Spontaneous
  Country: JP (occurrence: JP)
  Receive Date: 20160804
  Receipt Date: 20160804
  Transmission Date: 20161109
  Serious: Yes (Other)
  Sender: FDA-Public Use
  Company Number: JP-PFIZER INC-2016370648

PATIENT

DRUGS (4)
  1. NEUROTROPIN /00398601/ [Concomitant]
     Active Substance: CYANOCOBALAMIN\LIDOCAINE HYDROCHLORIDE\PYRIDOXINE HYDROCHLORIDE\THIAMINE HYDROCHLORIDE
     Dosage: UNK UNK, UNKNOWN FREQ.
     Dates: start: 201607
  2. CELECOX [Suspect]
     Active Substance: CELECOXIB
     Dosage: 200 MG, 1X/DAY
     Dates: start: 201607
  3. RIZE /00624801/ [Concomitant]
     Active Substance: CLOTIAZEPAM
     Dosage: UNK UNK, UNKNOWN FREQ.
  4. MYSLEE [Suspect]
     Active Substance: ZOLPIDEM TARTRATE
     Dosage: UNK UNK, UNKNOWN FREQ.

REACTIONS (2)
  - Rash macular [Unknown]
  - Internal haemorrhage [Unknown]

NARRATIVE: CASE EVENT DATE: 20160724
